FAERS Safety Report 14203829 (Version 2)
Quarter: 2018Q1

REPORT INFORMATION
  Report Type: Spontaneous
  Country: US (occurrence: US)
  Receive Date: 20171120
  Receipt Date: 20180123
  Transmission Date: 20180508
  Serious: Yes (Other)
  Sender: FDA-Public Use
  Company Number: US-PFIZER INC-2017494876

PATIENT
  Sex: Female

DRUGS (2)
  1. METHOTREXATE. [Suspect]
     Active Substance: METHOTREXATE
     Indication: RHEUMATOID ARTHRITIS
     Dosage: 10 MG, WEEKLY (2.5 MG 4 TABS WEEKLY)
     Dates: start: 201702, end: 20170710
  2. METHOTREXATE SODIUM. [Suspect]
     Active Substance: METHOTREXATE SODIUM
     Indication: RHEUMATOID ARTHRITIS
     Dosage: UNK
     Dates: start: 2015, end: 201611

REACTIONS (7)
  - Drug hypersensitivity [Unknown]
  - Cough [Recovered/Resolved]
  - Pulmonary congestion [Unknown]
  - Dyspnoea [Unknown]
  - Chest pain [Unknown]
  - Drug ineffective [Unknown]
  - Alopecia [Unknown]
